FAERS Safety Report 21950717 (Version 1)
Quarter: 2023Q1

REPORT INFORMATION
  Report Type: Spontaneous
  Country: AU (occurrence: AU)
  Receive Date: 20230203
  Receipt Date: 20230203
  Transmission Date: 20230417
  Serious: Yes (Other)
  Sender: FDA-Public Use
  Company Number: AU-BAXTER-2023BAX012010

PATIENT
  Sex: Male

DRUGS (9)
  1. DOXORUBICIN [Suspect]
     Active Substance: DOXORUBICIN
     Indication: Diffuse large B-cell lymphoma
     Dosage: 6 CYCLES OF R-CHOP WITH 6 MONTHS OF COMPLETE REMISSION
     Route: 065
  2. CYCLOPHOSPHAMIDE [Suspect]
     Active Substance: CYCLOPHOSPHAMIDE
     Indication: Diffuse large B-cell lymphoma
     Dosage: 6 CYCLES OF R-CHOP WITH 6 MONTHS OF COMPLETE REMISSION
     Route: 065
  3. IFOSFAMIDE [Suspect]
     Active Substance: IFOSFAMIDE
     Indication: Diffuse large B-cell lymphoma
     Dosage: 2 CYCLES OF R-IVAC SALVAGE WITH PARTIAL RESPONSE, THEN EARLY PROGRESSION
     Route: 065
  4. RITUXIMAB [Suspect]
     Active Substance: RITUXIMAB
     Indication: Diffuse large B-cell lymphoma
     Dosage: 6 CYCLES OF R-CHOP WITH 6 MONTHS OF COMPLETE REMISSION
     Route: 065
  5. RITUXIMAB [Suspect]
     Active Substance: RITUXIMAB
     Dosage: 2 CYCLES OF R-IVAC SALVAGE WITH PARTIAL RESPONSE, THEN EARLY PROGRESSION
     Route: 065
  6. VINCRISTINE [Suspect]
     Active Substance: VINCRISTINE
     Indication: Diffuse large B-cell lymphoma
     Dosage: 6 CYCLES OF R-CHOP WITH 6 MONTHS OF COMPLETE REMISSION
     Route: 065
  7. PREDNISONE [Suspect]
     Active Substance: PREDNISONE
     Indication: Diffuse large B-cell lymphoma
     Dosage: 6 CYCLES OF R-CHOP WITH 6 MONTHS OF COMPLETE REMISSION
     Route: 065
  8. ETOPOSIDE [Suspect]
     Active Substance: ETOPOSIDE
     Indication: Diffuse large B-cell lymphoma
     Dosage: 2 CYCLES OF R-IVAC SALVAGE WITH PARTIAL RESPONSE, THEN EARLY PROGRESSION
     Route: 065
  9. CYTARABINE [Suspect]
     Active Substance: CYTARABINE
     Indication: Diffuse large B-cell lymphoma
     Dosage: 2 CYCLES OF R-IVAC SALVAGE WITH PARTIAL RESPONSE, THEN EARLY PROGRESSION
     Route: 065

REACTIONS (4)
  - Non-Hodgkin^s lymphoma [Unknown]
  - Diffuse large B-cell lymphoma recurrent [Unknown]
  - Therapy partial responder [Unknown]
  - Therapeutic response shortened [Unknown]
